FAERS Safety Report 8878977 (Version 2)
Quarter: 2012Q4

REPORT INFORMATION
  Report Type: 
  Country: BE (occurrence: BE)
  Receive Date: 20121026
  Receipt Date: 20121102
  Transmission Date: 20130627
  Serious: Yes (Death)
  Sender: FDA-Public Use
  Company Number: BE-TEVA-365060ISR

PATIENT
  Age: 61 Year
  Sex: Female

DRUGS (8)
  1. NAPROXEN [Suspect]
     Indication: ARTHRITIS
     Dosage: 1500 Milligram Daily; And as needed
     Route: 065
  2. ATORVASTATIN [Suspect]
     Dosage: 10 Milligram Daily;
     Route: 065
  3. METFORMIN [Concomitant]
     Dosage: 500 Milligram Daily;
     Route: 065
  4. HYDROCHLOROTHIAZIDE\LISINOPRIL [Concomitant]
     Dosage: 1 DF = 20/12.5mg
     Route: 065
  5. TRAMADOL [Concomitant]
     Dosage: as needed
     Route: 065
  6. ALLOPURINOL [Concomitant]
     Dosage: 300 Milligram Daily;
     Route: 065
  7. RANITIDINE [Concomitant]
     Dosage: 500 Milligram Daily;
     Route: 065
  8. QUININE [Concomitant]
     Dosage: 100 Milligram Daily;
     Route: 065

REACTIONS (3)
  - Toxic epidermal necrolysis [Fatal]
  - Rhabdomyolysis [Fatal]
  - Renal infarct [Fatal]
